FAERS Safety Report 24283870 (Version 3)
Quarter: 2025Q3

REPORT INFORMATION
  Report Type: Spontaneous
  Country: US (occurrence: US)
  Receive Date: 20240905
  Receipt Date: 20250910
  Transmission Date: 20251020
  Serious: No
  Sender: STRIDES
  Company Number: US-STRIDES ARCOLAB LIMITED-2024SP007898

PATIENT
  Age: 22 Year
  Sex: Female

DRUGS (7)
  1. TACROLIMUS [Interacting]
     Active Substance: TACROLIMUS
     Indication: Liver transplant
     Route: 065
  2. TACROLIMUS [Interacting]
     Active Substance: TACROLIMUS
     Indication: Immunosuppressant drug therapy
  3. MYCOPHENOLATE MOFETIL [Interacting]
     Active Substance: MYCOPHENOLATE MOFETIL
     Indication: Immunosuppressant drug therapy
     Route: 065
  4. ELEXACAFTOR\IVACAFTOR\TEZACAFTOR [Interacting]
     Active Substance: ELEXACAFTOR\IVACAFTOR\TEZACAFTOR
     Indication: Cystic fibrosis
     Route: 065
  5. ELEXACAFTOR\IVACAFTOR\TEZACAFTOR [Interacting]
     Active Substance: ELEXACAFTOR\IVACAFTOR\TEZACAFTOR
     Route: 065
  6. BASILIXIMAB [Concomitant]
     Active Substance: BASILIXIMAB
     Indication: Immunosuppressant drug therapy
     Route: 065
  7. BASILIXIMAB [Concomitant]
     Active Substance: BASILIXIMAB
     Indication: Liver transplant

REACTIONS (2)
  - Drug level fluctuating [Unknown]
  - Drug interaction [Unknown]
